FAERS Safety Report 25757087 (Version 1)
Quarter: 2025Q3

REPORT INFORMATION
  Report Type: Report from Study
  Country: US (occurrence: US)
  Receive Date: 20250903
  Receipt Date: 20250903
  Transmission Date: 20251021
  Serious: Yes (Hospitalization, Other)
  Sender: CALLIDITAS THERAPEUTICS AB
  Company Number: US-Calliditas-2025CAL02261

PATIENT
  Age: 66 Year
  Sex: Male

DRUGS (7)
  1. TARPEYO [Suspect]
     Active Substance: BUDESONIDE
     Indication: IgA nephropathy
     Route: 048
     Dates: start: 20250628
  2. CARVEDILOL [Concomitant]
     Active Substance: CARVEDILOL
  3. ELIQUIS [Concomitant]
     Active Substance: APIXABAN
  4. FUROSEMIDE [Concomitant]
     Active Substance: FUROSEMIDE
  5. NEBIVOLOL [Concomitant]
     Active Substance: NEBIVOLOL
  6. LOSARTAN [Concomitant]
     Active Substance: LOSARTAN
  7. PROBIOTICS NOS [Concomitant]
     Active Substance: PROBIOTICS NOS

REACTIONS (10)
  - Surgery [Recovered/Resolved]
  - Product dose omission issue [Recovered/Resolved]
  - Arthritis [Recovering/Resolving]
  - Drug ineffective [Unknown]
  - Pulmonary oedema [Unknown]
  - Swelling face [Unknown]
  - Blood pressure increased [Recovering/Resolving]
  - Drug hypersensitivity [Recovering/Resolving]
  - Gastritis [Recovering/Resolving]
  - Pancreatitis acute [Recovering/Resolving]
